FAERS Safety Report 10239760 (Version 2)
Quarter: 2015Q1

REPORT INFORMATION
  Report Type: Report from Study
  Country: DE (occurrence: DE)
  Receive Date: 20140616
  Receipt Date: 20150129
  Transmission Date: 20150720
  Serious: Yes (Hospitalization, Other)
  Sender: FDA-Public Use
  Company Number: US-ASTRAZENECA-2014SE41109

PATIENT
  Age: 6 Month
  Sex: Male
  Weight: 4.9 kg

DRUGS (2)
  1. CEFUROXIM [Suspect]
     Active Substance: CEFUROXIME
     Indication: PRODUCT USED FOR UNKNOWN INDICATION
     Route: 048
  2. SYNAGIS [Suspect]
     Active Substance: PALIVIZUMAB
     Indication: ANTIVIRAL PROPHYLAXIS
     Route: 030
     Dates: start: 20131009, end: 20140514

REACTIONS (13)
  - General physical health deterioration [Unknown]
  - Dehydration [Unknown]
  - Ocular hyperaemia [Unknown]
  - Gastroenteritis norovirus [Recovered/Resolved]
  - Pallor [Unknown]
  - Pneumonia [Recovered/Resolved]
  - Diarrhoea [Unknown]
  - Bronchitis [Recovered/Resolved]
  - Respiratory failure [Recovered/Resolved]
  - Vomiting [Unknown]
  - Post-tussive vomiting [Unknown]
  - Pharyngeal erythema [Unknown]
  - Rhinitis [Unknown]

NARRATIVE: CASE EVENT DATE: 201311
